FAERS Safety Report 6810732-3 (Version None)
Quarter: 2010Q2

REPORT INFORMATION
  Report Type: 
  Country: None (occurrence: None)
  Receive Date: 20100630
  Receipt Date: 20071121
  Transmission Date: 20101027
  Serious: No
  Sender: FDA-Public Use
  Company Number: US-PFIZER INC-2007100274

PATIENT
  Sex: Male

DRUGS (2)
  1. GLYBURIDE [Suspect]
  2. CLOZAPINE [Interacting]

REACTIONS (2)
  - DRUG INTERACTION [None]
  - DRUG TOXICITY [None]
